FAERS Safety Report 5480175-6 (Version None)
Quarter: 2007Q4

REPORT INFORMATION
  Report Type: 
  Country: None (occurrence: None)
  Receive Date: 20071009
  Receipt Date: 20071001
  Transmission Date: 20080405
  Serious: Yes (Other)
  Sender: FDA-Public Use
  Company Number: JP-BAYER-200715676GDS

PATIENT
  Age: 39 Year
  Sex: Female

DRUGS (5)
  1. ASPIRIN [Suspect]
     Indication: ANTICOAGULANT THERAPY
     Dosage: UNIT DOSE: 81 MG
     Route: 048
  2. PREDNISOLONE [Concomitant]
     Indication: ANTIPHOSPHOLIPID SYNDROME
     Route: 048
     Dates: start: 20061201
  3. PREDNISOLONE [Concomitant]
     Route: 048
     Dates: end: 20061201
  4. SARPOGRELATE HYDROCHLORIDE [Concomitant]
     Indication: ANTICOAGULANT THERAPY
     Route: 065
  5. WARFARIN SODIUM [Concomitant]
     Indication: ANTICOAGULANT THERAPY
     Route: 065

REACTIONS (3)
  - ABDOMINAL PAIN UPPER [None]
  - CHOLECYSTITIS ACUTE [None]
  - INFLAMMATION [None]
